FAERS Safety Report 20871625 (Version 3)
Quarter: 2022Q2

REPORT INFORMATION
  Report Type: Spontaneous
  Country: US (occurrence: US)
  Receive Date: 20220525
  Receipt Date: 20220607
  Transmission Date: 20220721
  Serious: No
  Sender: FDA-Public Use
  Company Number: US-UNITED THERAPEUTICS-UNT-2022-008559

PATIENT
  Age: 50 Year
  Sex: Female

DRUGS (3)
  1. REMODULIN [Suspect]
     Active Substance: TREPROSTINIL
     Indication: Pulmonary arterial hypertension
     Dosage: 0.04554 ?G/KG, CONTINUING
     Route: 058
     Dates: start: 20220413
  2. REMODULIN [Suspect]
     Active Substance: TREPROSTINIL
     Dosage: 0.05055 ?G/KG, CONTINUING
     Route: 058
     Dates: start: 20220520
  3. REMODULIN [Suspect]
     Active Substance: TREPROSTINIL
     Dosage: 0.04508 ?G/KG, CONTINUING
     Route: 058

REACTIONS (9)
  - Infusion site pain [Unknown]
  - Dizziness [Unknown]
  - Headache [Unknown]
  - Pain in jaw [Unknown]
  - Device breakage [Unknown]
  - Infusion site infection [Unknown]
  - Device infusion issue [Recovered/Resolved]
  - Vomiting [Unknown]
  - Diarrhoea [Unknown]

NARRATIVE: CASE EVENT DATE: 20220401
